FAERS Safety Report 4585516-X (Version None)
Quarter: 2005Q1

REPORT INFORMATION
  Report Type: 
  Country: None (occurrence: None)
  Receive Date: 20050214
  Receipt Date: 20050203
  Transmission Date: 20050727
  Serious: Yes (Other)
  Sender: FDA-Public Use
  Company Number: 2005-02-0253

PATIENT
  Age: 77 Year
  Sex: Male

DRUGS (2)
  1. RINDERON (BETAMETHASONE SODIUM PHOSPHATE) INJECTABLE SOLUTION   ^LIKE [Suspect]
     Indication: PLEURISY
     Dosage: 1 MG QD INTRAVENOUS
     Route: 042
  2. HYDROCORTISONE SODIUM SUCCINATE [Suspect]
     Indication: PLEURISY
     Dosage: 100 MG QD INTRAVENOUS
     Route: 042

REACTIONS (2)
  - INFECTIVE SPONDYLITIS [None]
  - SPINAL CORD PARALYSIS [None]
